FAERS Safety Report 8576227-4 (Version None)
Quarter: 2012Q3

REPORT INFORMATION
  Report Type: 
  Country: None (occurrence: None)
  Receive Date: 20120807
  Receipt Date: 20120731
  Transmission Date: 20120928
  Serious: Yes (Hospitalization, Other)
  Sender: FDA-Public Use
  Company Number: FR-PFIZER INC-2012184884

PATIENT
  Age: 35 Year
  Sex: Male

DRUGS (9)
  1. LYRICA [Suspect]
     Indication: PAIN
     Dosage: UNK
     Dates: start: 20120501
  2. OXYCONTIN [Suspect]
     Indication: PAIN
     Dosage: UNK
     Route: 048
     Dates: start: 20120523
  3. REMICADE [Suspect]
     Indication: SPONDYLITIS
     Dosage: 400 MG ONCE IN 8 WEEKS
     Route: 042
     Dates: start: 20090301, end: 20120418
  4. LASIX [Suspect]
     Indication: OEDEMA PERIPHERAL
     Dosage: UNK
     Route: 048
     Dates: start: 20120601, end: 20120602
  5. LYRICA [Suspect]
     Dosage: 75 MG, 2X/DAY
     Route: 048
     Dates: end: 20120506
  6. PANTOPRAZOLE SODIUM [Suspect]
     Dosage: 40 MG, 1X/DAY
     Route: 048
     Dates: start: 20120529, end: 20120603
  7. OXYCODONE HYDROCHLORIDE [Suspect]
     Indication: PAIN
     Dosage: 5 MG
     Route: 048
     Dates: start: 20120523, end: 20120603
  8. LIDOCAINE [Suspect]
     Indication: PAIN
     Dosage: UNK
     Route: 061
     Dates: start: 20120524
  9. NEFOPAM [Suspect]
     Indication: PAIN
     Dosage: UNK
     Route: 048
     Dates: start: 20120522

REACTIONS (5)
  - RASH VESICULAR [None]
  - PAIN [None]
  - ERYTHEMA [None]
  - HERPES ZOSTER [None]
  - OEDEMA PERIPHERAL [None]
